FAERS Safety Report 13114838 (Version 1)
Quarter: 2017Q1

REPORT INFORMATION
  Report Type: Spontaneous
  Country: US (occurrence: US)
  Receive Date: 20170113
  Receipt Date: 20170113
  Transmission Date: 20170428
  Serious: Yes (Other)
  Sender: FDA-Public Use
  Company Number: US-LANNETT COMPANY, INC.-US-2016LAN001851

PATIENT

DRUGS (2)
  1. RIFAMPIN. [Suspect]
     Active Substance: RIFAMPIN
     Indication: MYCOBACTERIUM AVIUM COMPLEX INFECTION
     Dosage: 300 MG, UNK
     Dates: start: 2015
  2. RIFAMPIN. [Suspect]
     Active Substance: RIFAMPIN
     Dosage: 300 MG, UNK
     Route: 048
     Dates: start: 201607

REACTIONS (5)
  - Mobility decreased [Unknown]
  - Hypoacusis [Unknown]
  - Visual impairment [Not Recovered/Not Resolved]
  - Neck deformity [Unknown]
  - Atrophy [Unknown]

NARRATIVE: CASE EVENT DATE: 2016
